FAERS Safety Report 4625340-2 (Version None)
Quarter: 2005Q2

REPORT INFORMATION
  Report Type: 
  Country: None (occurrence: None)
  Receive Date: 20050401
  Receipt Date: 20030617
  Transmission Date: 20051028
  Serious: Yes (Hospitalization)
  Sender: FDA-Public Use
  Company Number: SE-GLAXOSMITHKLINE-B0302490A

PATIENT
  Age: 51 Year
  Sex: Female

DRUGS (3)
  1. ZYBAN [Suspect]
     Indication: SMOKING CESSATION THERAPY
     Dates: start: 20030501, end: 20030614
  2. BRICANYL [Concomitant]
  3. PULMICORT [Concomitant]

REACTIONS (6)
  - HEADACHE [None]
  - LEUKOPENIA [None]
  - MENINGITIS [None]
  - NEUTROPENIA [None]
  - PAIN [None]
  - PYREXIA [None]
